FAERS Safety Report 23150326 (Version 2)
Quarter: 2024Q1

REPORT INFORMATION
  Report Type: Report from Study
  Country: FR (occurrence: FR)
  Receive Date: 20231106
  Receipt Date: 20240228
  Transmission Date: 20240410
  Serious: Yes (Other)
  Sender: FDA-Public Use
  Company Number: FR-RECORDATI-2023003180

PATIENT
  Age: 36 Year
  Sex: Female
  Weight: 53 kg

DRUGS (19)
  1. OXYCODONE HYDROCHLORIDE [Suspect]
     Active Substance: OXYCODONE HYDROCHLORIDE
     Indication: Cancer pain
     Dosage: 42 MILLIGRAM, QD
     Route: 042
     Dates: start: 20221122, end: 20221123
  2. OXYCODONE HYDROCHLORIDE [Suspect]
     Active Substance: OXYCODONE HYDROCHLORIDE
     Dosage: UNK
     Route: 048
     Dates: start: 20221110, end: 20221117
  3. OXYCODONE HYDROCHLORIDE [Suspect]
     Active Substance: OXYCODONE HYDROCHLORIDE
     Dosage: UNK
     Route: 042
     Dates: start: 20221118, end: 20221121
  4. OXYCODONE HYDROCHLORIDE [Suspect]
     Active Substance: OXYCODONE HYDROCHLORIDE
     Dosage: 84 MILLIGRAM, QD
     Route: 042
     Dates: start: 20221121, end: 20221122
  5. METHADONE HYDROCHLORIDE [Suspect]
     Active Substance: METHADONE HYDROCHLORIDE
     Indication: Cancer pain
     Dosage: 85 MILLIGRAM, QD
     Route: 065
     Dates: start: 20221124, end: 20221124
  6. METHADONE HYDROCHLORIDE [Suspect]
     Active Substance: METHADONE HYDROCHLORIDE
     Dosage: 100 MILLIGRAM, QD
     Route: 065
     Dates: start: 20221125, end: 20221125
  7. METHADONE HYDROCHLORIDE [Suspect]
     Active Substance: METHADONE HYDROCHLORIDE
     Dosage: 85 MILLIGRAM, QD
     Route: 065
     Dates: start: 20221129, end: 20221129
  8. METHADONE HYDROCHLORIDE [Suspect]
     Active Substance: METHADONE HYDROCHLORIDE
     Dosage: 90 MILLIGRAM, QD
     Route: 065
     Dates: start: 20221201, end: 20230104
  9. METHADONE HYDROCHLORIDE [Suspect]
     Active Substance: METHADONE HYDROCHLORIDE
     Dosage: 90 MILLIGRAM, QD
     Route: 065
     Dates: start: 20221123, end: 20221123
  10. METHADONE HYDROCHLORIDE [Suspect]
     Active Substance: METHADONE HYDROCHLORIDE
     Dosage: 80 MILLIGRAM, QD
     Route: 065
     Dates: start: 20230104
  11. METHADONE HYDROCHLORIDE [Suspect]
     Active Substance: METHADONE HYDROCHLORIDE
     Dosage: 100 MILLIGRAM, QD
     Route: 065
     Dates: start: 20221130, end: 20221130
  12. METHADONE HYDROCHLORIDE [Suspect]
     Active Substance: METHADONE HYDROCHLORIDE
     Dosage: 60 MILLIGRAM, QD
     Route: 065
     Dates: start: 20221126, end: 20221126
  13. METHADONE HYDROCHLORIDE [Suspect]
     Active Substance: METHADONE HYDROCHLORIDE
     Dosage: 65 MILLIGRAM, QD
     Route: 065
     Dates: start: 20221128, end: 20221128
  14. METHADONE HYDROCHLORIDE [Suspect]
     Active Substance: METHADONE HYDROCHLORIDE
     Dosage: 70 MILLIGRAM, QD
     Route: 065
     Dates: start: 20221127, end: 20221127
  15. METHADONE HYDROCHLORIDE [Suspect]
     Active Substance: METHADONE HYDROCHLORIDE
     Dosage: 45 MILLIGRAM, QD
     Route: 065
     Dates: start: 20221122, end: 20221122
  16. KETOPROFEN [Concomitant]
     Active Substance: KETOPROFEN
     Indication: Analgesic therapy
     Dosage: 100 MILLIGRAM
     Route: 065
  17. DOLIPRANE [Concomitant]
     Active Substance: ACETAMINOPHEN
     Indication: Analgesic therapy
     Dosage: UNK
     Route: 065
  18. LYRICA [Concomitant]
     Active Substance: PREGABALIN
     Indication: Analgesic therapy
     Dosage: UNK
     Route: 065
  19. OXYCODONE HYDROCHLORIDE [Concomitant]
     Active Substance: OXYCODONE HYDROCHLORIDE
     Indication: Analgesic therapy
     Dosage: UNK
     Route: 065

REACTIONS (13)
  - Hypoxia [Recovered/Resolved]
  - Hallucination [Recovered/Resolved]
  - Myoclonus [Recovered/Resolved]
  - Constipation [Recovered/Resolved]
  - Constipation [Recovered/Resolved]
  - Vomiting [Recovered/Resolved]
  - Dry mouth [Unknown]
  - Somnolence [Recovered/Resolved]
  - Confusional state [Recovered/Resolved]
  - Dry mouth [Recovered/Resolved]
  - Nausea [Unknown]
  - Nausea [Recovered/Resolved]
  - Pruritus [Unknown]

NARRATIVE: CASE EVENT DATE: 20220101
